FAERS Safety Report 14928260 (Version 2)
Quarter: 2018Q2

REPORT INFORMATION
  Report Type: Spontaneous
  Country: US (occurrence: US)
  Receive Date: 20180523
  Receipt Date: 20180616
  Transmission Date: 20180711
  Serious: Yes (Life-Threatening)
  Sender: FDA-Public Use
  Company Number: US-AUROBINDO-AUR-APL-2018-026484

PATIENT
  Age: 21 Year
  Sex: Male

DRUGS (5)
  1. RISPERIDONE. [Suspect]
     Active Substance: RISPERIDONE
     Dosage: 3 MILLIGRAM EVENING
     Route: 048
  2. RISPERIDONE. [Suspect]
     Active Substance: RISPERIDONE
     Indication: SCHIZOPHRENIA
     Dosage: 2 MILLIGRAM IN THE MORNING
     Route: 048
  3. PALIPERIDONE PALMITATE [Suspect]
     Active Substance: PALIPERIDONE PALMITATE
     Dosage: 156 MILLIGRAM
     Route: 030
  4. BENZTROPINE                        /00012901/ [Suspect]
     Active Substance: BENZTROPINE
     Indication: SCHIZOPHRENIA
     Dosage: 2 MILLIGRAM, TWO TIMES A DAY
  5. PALIPERIDONE PALMITATE [Suspect]
     Active Substance: PALIPERIDONE PALMITATE
     Indication: SCHIZOPHRENIA
     Dosage: 234 MILLIGRAM
     Route: 030

REACTIONS (2)
  - Sinus tachycardia [Not Recovered/Not Resolved]
  - Autonomic nervous system imbalance [Not Recovered/Not Resolved]
